FAERS Safety Report 8236113 (Version 7)
Quarter: 2012Q4

REPORT INFORMATION
  Report Type: 
  Country: US (occurrence: US)
  Receive Date: 20111108
  Receipt Date: 20120913
  Transmission Date: 20130627
  Serious: Yes (Hospitalization)
  Sender: FDA-Public Use
  Company Number: US-GLAXOSMITHKLINE-A0914639A

PATIENT
  Age: 37 Year
  Sex: Male
  Weight: 74.5 kg

DRUGS (1)
  1. AVANDIA [Suspect]
     Indication: DIABETES MELLITUS
     Dosage: 4MG Per day
     Route: 048
     Dates: start: 200501

REACTIONS (7)
  - Myocardial infarction [Not Recovered/Not Resolved]
  - Loss of consciousness [Unknown]
  - Cardiac failure congestive [Unknown]
  - Ventricular arrhythmia [Unknown]
  - Heart rate irregular [Unknown]
  - Dizziness [Unknown]
  - Coronary artery disease [Unknown]
